FAERS Safety Report 9733887 (Version 1)
Quarter: 2013Q4

REPORT INFORMATION
  Report Type: Spontaneous
  Country: ES (occurrence: ES)
  Receive Date: 20131205
  Receipt Date: 20131205
  Transmission Date: 20140711
  Serious: Yes (Other)
  Sender: FDA-Public Use
  Company Number: ES-JNJFOC-20131117668

PATIENT
  Age: 35 Year
  Sex: Female

DRUGS (1)
  1. FUNGAREST [Suspect]
     Indication: CUSHING^S SYNDROME
     Route: 065
     Dates: start: 201210, end: 201301

REACTIONS (3)
  - Tinnitus [Unknown]
  - Adrenal insufficiency [Unknown]
  - Off label use [Unknown]
